FAERS Safety Report 7416869-2 (Version None)
Quarter: 2011Q2

REPORT INFORMATION
  Report Type: 
  Country: None (occurrence: None)
  Receive Date: 20110415
  Receipt Date: 20110412
  Transmission Date: 20111010
  Serious: Yes (Hospitalization, Other)
  Sender: FDA-Public Use
  Company Number: US-ASTRAZENECA-2007UW12277

PATIENT
  Age: 6471 Day
  Sex: Male
  Weight: 105.5 kg

DRUGS (57)
  1. SEROQUEL [Suspect]
     Indication: BIPOLAR DISORDER
     Dosage: 25-400 MG
     Route: 048
     Dates: start: 20040929
  2. SEROQUEL [Suspect]
     Route: 048
     Dates: end: 20070502
  3. DEPAKOTE ER [Concomitant]
     Dosage: TAKE 5 TABLETS AT 8 PM.
     Route: 048
     Dates: start: 20060602
  4. LITHIUM CARBONATE [Concomitant]
     Indication: MOOD SWINGS
     Route: 048
     Dates: start: 19960101
  5. LITHIUM CARBONATE [Concomitant]
     Route: 048
     Dates: start: 20050209
  6. LITHIUM CARBONATE [Concomitant]
     Dosage: ONE TAB IN THE MORNING AND TWO AT BED TIME.
     Route: 048
     Dates: start: 20060602
  7. CLONIDINE HCL [Concomitant]
     Indication: ATTENTION DEFICIT/HYPERACTIVITY DISORDER
     Dates: start: 20050209
  8. GEODON [Concomitant]
     Indication: AGGRESSION
     Route: 048
     Dates: start: 20060501
  9. KLONOPIN [Concomitant]
     Indication: AGITATION
     Dates: start: 20040101, end: 20060101
  10. KLONOPIN [Concomitant]
     Route: 048
     Dates: start: 20060602
  11. RITALIN [Concomitant]
     Indication: ATTENTION DEFICIT/HYPERACTIVITY DISORDER
  12. LITHIUM [Concomitant]
     Dosage: 150 MG 2 PM
     Dates: end: 20060616
  13. RISPERDAL [Concomitant]
     Indication: BIPOLAR DISORDER
     Dosage: 5 MG - 400 MG
     Route: 048
     Dates: start: 19970101, end: 20041014
  14. DEPAKOTE ER [Concomitant]
     Indication: BIPOLAR DISORDER
     Dates: start: 19970101
  15. DEPAKOTE ER [Concomitant]
     Dosage: TAKE 5 TABLETS AT 8 PM.
     Route: 048
     Dates: start: 20060602
  16. LITHIUM CARBONATE [Concomitant]
     Dosage: 450 MG TO ONE TABLET AT 7 AM AND 8 PM
     Dates: end: 20060616
  17. GEODON [Concomitant]
     Indication: BIPOLAR DISORDER
     Route: 048
     Dates: start: 20060501
  18. GEODON [Concomitant]
     Route: 048
     Dates: start: 20060602
  19. NAVANE [Concomitant]
     Dates: start: 19970101, end: 20050101
  20. VALIUM [Concomitant]
     Dates: start: 20060530
  21. SEROQUEL [Suspect]
     Indication: PSYCHOTIC DISORDER
     Dosage: 25-400 MG
     Route: 048
     Dates: start: 20040929
  22. SEROQUEL [Suspect]
     Route: 048
     Dates: start: 20060101
  23. DEPAKOTE ER [Concomitant]
     Dosage: 250-2500 MG
     Route: 048
     Dates: start: 20050209
  24. KLONOPIN [Concomitant]
     Dates: end: 20070502
  25. KLONOPIN [Concomitant]
     Dates: start: 20060701
  26. LITHIUM [Concomitant]
     Dosage: 150 MG AT 2 PM
     Route: 048
     Dates: start: 20060602
  27. SEROQUEL [Suspect]
     Dosage: 50 MG - 400 MG
     Route: 048
     Dates: start: 20041014, end: 20060101
  28. DEPAKOTE ER [Concomitant]
     Dosage: 250-2500 MG
     Route: 048
     Dates: start: 20050209
  29. DEPAKOTE ER [Concomitant]
     Dosage: 2000-2500 MG
     Dates: start: 20060701
  30. LITHIUM CARBONATE [Concomitant]
     Dosage: 450 MG TO ONE TABLET AT 7 AM AND 8 PM
     Dates: end: 20060616
  31. GEODON [Concomitant]
     Dosage: 20-80 MG
     Route: 048
     Dates: start: 20060511
  32. KLONOPIN [Concomitant]
     Dosage: 0.25-0.5 MG B.I.D
     Dates: start: 20060511
  33. KLONOPIN [Concomitant]
     Dates: end: 20070502
  34. RITALIN [Concomitant]
     Indication: INTERMITTENT EXPLOSIVE DISORDER
  35. HALDOL [Concomitant]
     Dosage: 40-180 MG
     Dates: start: 20060308
  36. REMERON [Concomitant]
     Indication: DELAYED SLEEP PHASE
     Dates: end: 20070502
  37. SEROQUEL [Suspect]
     Route: 048
     Dates: end: 20070502
  38. RISPERDAL [Concomitant]
     Dosage: 2 MG-4 MG
     Route: 048
     Dates: start: 20030801, end: 20040701
  39. SYNTHROID [Concomitant]
     Indication: HYPOTHYROIDISM
     Dosage: 100-112.5 MCG EVERY MORNING
     Route: 048
     Dates: start: 20060425
  40. SEROQUEL [Suspect]
     Route: 048
     Dates: end: 20070401
  41. DEPAKOTE ER [Concomitant]
     Dosage: 2000-2500 MG
     Dates: start: 20060701
  42. KLONOPIN [Concomitant]
     Indication: DELAYED SLEEP PHASE
     Dates: start: 20040101, end: 20060101
  43. KLONOPIN [Concomitant]
     Dosage: 0.25-0.5 MG B.I.D
     Dates: start: 20060511
  44. SEROQUEL [Suspect]
     Dosage: 50 MG - 400 MG
     Route: 048
     Dates: start: 20041014, end: 20060101
  45. SEROQUEL [Suspect]
     Route: 048
     Dates: start: 20060101
  46. LITHIUM CARBONATE [Concomitant]
     Indication: BIPOLAR DISORDER
     Route: 048
     Dates: start: 19960101
  47. LITHIUM CARBONATE [Concomitant]
     Route: 048
     Dates: start: 20050209
  48. LITHIUM CARBONATE [Concomitant]
     Dosage: ONE TAB IN THE MORNING AND TWO AT BED TIME.
     Route: 048
     Dates: start: 20060602
  49. CLONIDINE HCL [Concomitant]
     Indication: PSYCHOMOTOR HYPERACTIVITY
     Dates: start: 20050209
  50. KLONOPIN [Concomitant]
     Dates: start: 20060701
  51. KLONOPIN [Concomitant]
     Route: 048
     Dates: start: 20060602
  52. SEROQUEL [Suspect]
     Route: 048
     Dates: end: 20070401
  53. ZYPREXA [Concomitant]
     Indication: BIPOLAR DISORDER
     Route: 048
     Dates: start: 20050725, end: 20050801
  54. DEPAKOTE ER [Concomitant]
     Indication: MOOD SWINGS
     Dates: start: 19970101
  55. GEODON [Concomitant]
     Dosage: 20-80 MG
     Route: 048
     Dates: start: 20060511
  56. GEODON [Concomitant]
     Route: 048
     Dates: start: 20060602
  57. CLONIDINE [Concomitant]
     Route: 048
     Dates: start: 20060602

REACTIONS (5)
  - ABNORMAL BEHAVIOUR [None]
  - TYPE 2 DIABETES MELLITUS [None]
  - TYPE 1 DIABETES MELLITUS [None]
  - INSULIN-REQUIRING TYPE 2 DIABETES MELLITUS [None]
  - BLOOD TRIGLYCERIDES INCREASED [None]
